FAERS Safety Report 4634301-9 (Version None)
Quarter: 2005Q2

REPORT INFORMATION
  Report Type: 
  Country: None (occurrence: None)
  Receive Date: 20050411
  Receipt Date: 20050328
  Transmission Date: 20051028
  Serious: No
  Sender: FDA-Public Use
  Company Number: 02100-JPN-05-0134

PATIENT
  Age: 79 Year
  Sex: Male

DRUGS (7)
  1. CILOSTAZOL [Suspect]
     Indication: LACUNAR INFARCTION
     Dosage: 100 MG ORAL
     Route: 048
     Dates: start: 20040423, end: 20040519
  2. ASPIRIN [Concomitant]
  3. ENALAPRIL MALEATE [Concomitant]
  4. MAGNESIUM OXIDE [Concomitant]
  5. SENNOSIDE [Concomitant]
  6. DAI-KENCHU-TO [Concomitant]
  7. CARVEDILOL [Concomitant]

REACTIONS (5)
  - AORTIC ANEURYSM [None]
  - COUGH [None]
  - HEADACHE [None]
  - LOSS OF CONSCIOUSNESS [None]
  - MONOCYTE COUNT ABNORMAL [None]
